FAERS Safety Report 6892542-4 (Version None)
Quarter: 2010Q3

REPORT INFORMATION
  Report Type: 
  Country: None (occurrence: None)
  Receive Date: 20100731
  Receipt Date: 20080702
  Transmission Date: 20110219
  Serious: No
  Sender: FDA-Public Use
  Company Number: US-PFIZER INC-2008052556

PATIENT
  Sex: Male
  Weight: 82.272 kg

DRUGS (6)
  1. CAVERJECT [Suspect]
  2. ACETYLSALICYLIC ACID SRT [Concomitant]
  3. SIMVASTATIN [Concomitant]
  4. PLAVIX [Concomitant]
  5. TOPROL-XL [Concomitant]
  6. OMEGA-3 MARINE TRIGLYCERIDES [Concomitant]

REACTIONS (1)
  - DRUG INEFFECTIVE [None]
